FAERS Safety Report 6635600-1 (Version None)
Quarter: 2010Q1

REPORT INFORMATION
  Report Type: 
  Country: None (occurrence: None)
  Receive Date: 20100315
  Receipt Date: 20100310
  Transmission Date: 20100710
  Serious: Yes (Death)
  Sender: FDA-Public Use
  Company Number: FR-MERCK-1003FRA00045

PATIENT
  Age: 80 Year
  Sex: Male

DRUGS (7)
  1. JANUVIA [Suspect]
     Indication: TYPE 2 DIABETES MELLITUS
     Route: 048
     Dates: start: 20100208, end: 20100201
  2. AMAREL [Concomitant]
     Indication: TYPE 2 DIABETES MELLITUS
     Route: 048
     Dates: end: 20100201
  3. KARDEGIC [Concomitant]
     Route: 048
     Dates: end: 20100201
  4. AMLOR [Concomitant]
     Route: 048
     Dates: end: 20100201
  5. APROVEL [Concomitant]
     Route: 048
     Dates: end: 20100201
  6. TAHOR [Concomitant]
     Route: 048
     Dates: end: 20100201
  7. DIFFU-K [Concomitant]
     Route: 048
     Dates: end: 20100201

REACTIONS (1)
  - DIABETIC HYPEROSMOLAR COMA [None]
